FAERS Safety Report 24014455 (Version 1)
Quarter: 2024Q2

REPORT INFORMATION
  Report Type: Report from Study
  Country: FR (occurrence: FR)
  Receive Date: 20240626
  Receipt Date: 20240626
  Transmission Date: 20240716
  Serious: Yes (Death, Other)
  Sender: FDA-Public Use
  Company Number: FR-SUN PHARMACEUTICAL INDUSTRIES LTD-2024RR-453348

PATIENT
  Age: 19 Year
  Sex: Male
  Weight: 50 kg

DRUGS (6)
  1. MIDAZOLAM [Suspect]
     Active Substance: MIDAZOLAM
     Indication: Sedation
     Route: 065
  2. MIDAZOLAM [Suspect]
     Active Substance: MIDAZOLAM
     Dosage: 0.04-0.12 MG/KG/H
     Route: 065
  3. CHLORPROMAZINE [Suspect]
     Active Substance: CHLORPROMAZINE
     Indication: Sedation
  4. CHLORPROMAZINE [Suspect]
     Active Substance: CHLORPROMAZINE
     Dosage: (0.04-0.08 MG/KG/H
     Route: 065
  5. KETAMINE [Suspect]
     Active Substance: KETAMINE
     Indication: Sedation
  6. KETAMINE [Suspect]
     Active Substance: KETAMINE
     Dosage: 0.02-0.6 MG/KG/H
     Route: 065

REACTIONS (2)
  - Palliative sedation [Fatal]
  - Altered state of consciousness [Unknown]
